FAERS Safety Report 15899894 (Version 1)
Quarter: 2019Q1

REPORT INFORMATION
  Report Type: Spontaneous
  Country: US (occurrence: US)
  Receive Date: 20190201
  Receipt Date: 20190201
  Transmission Date: 20190417
  Serious: Yes (Death, Other)
  Sender: FDA-Public Use
  Company Number: US-PFIZER INC-2008085321

PATIENT
  Age: 50 Year
  Sex: Male

DRUGS (13)
  1. CYTARABINE. [Concomitant]
     Active Substance: CYTARABINE
     Indication: BURKITT^S LYMPHOMA
     Dosage: UNK
  2. LEUCOVORIN CALCIUM. [Concomitant]
     Active Substance: LEUCOVORIN CALCIUM
     Indication: BURKITT^S LYMPHOMA
     Dosage: UNK
  3. PREDNISONE. [Concomitant]
     Active Substance: PREDNISONE
     Indication: BURKITT^S LYMPHOMA
     Dosage: UNK
  4. IFOSFAMIDE. [Concomitant]
     Active Substance: IFOSFAMIDE
     Indication: BURKITT^S LYMPHOMA
     Dosage: UNK
  5. LEUCOVORIN. [Concomitant]
     Active Substance: LEUCOVORIN
  6. ETOPOSIDE. [Concomitant]
     Active Substance: ETOPOSIDE
     Indication: BURKITT^S LYMPHOMA
     Dosage: UNK
  7. CYCLOPHOSPHAMIDE. [Concomitant]
     Active Substance: CYCLOPHOSPHAMIDE
     Indication: BURKITT^S LYMPHOMA
  8. DECADRON [Concomitant]
     Active Substance: DEXAMETHASONE
     Indication: BURKITT^S LYMPHOMA
     Dosage: UNK
  9. MESNA. [Concomitant]
     Active Substance: MESNA
     Indication: BURKITT^S LYMPHOMA
     Dosage: UNK
  10. VINCRISTINE [Concomitant]
     Active Substance: VINCRISTINE
  11. METHOTREXATE SODIUM. [Suspect]
     Active Substance: METHOTREXATE SODIUM
     Dosage: UNK [GIVEN TWICE]
     Route: 037
  12. ARA-C [Concomitant]
     Active Substance: CYTARABINE
  13. VINCRISTINE SULFATE. [Concomitant]
     Active Substance: VINCRISTINE SULFATE
     Indication: BURKITT^S LYMPHOMA
     Dosage: UNK

REACTIONS (1)
  - Leukoencephalopathy [Fatal]
